FAERS Safety Report 16796175 (Version 1)
Quarter: 2019Q3

REPORT INFORMATION
  Report Type: Spontaneous
  Country: US (occurrence: US)
  Receive Date: 20190911
  Receipt Date: 20190911
  Transmission Date: 20191005
  Serious: Yes (Hospitalization, Other)
  Sender: FDA-Public Use
  Company Number: US-VERTEX PHARMACEUTICALS-2019-008556

PATIENT
  Age: 3 Year
  Sex: Male
  Weight: 11 kg

DRUGS (1)
  1. ORKAMBI [Suspect]
     Active Substance: IVACAFTOR\LUMACAFTOR
     Indication: CYSTIC FIBROSIS
     Dosage: 100MG/125MG GRANULES (1 PACKET), BID
     Route: 048
     Dates: start: 20190603

REACTIONS (5)
  - Sinus disorder [Unknown]
  - Infective pulmonary exacerbation of cystic fibrosis [Unknown]
  - Lung disorder [Unknown]
  - Hypersensitivity [Unknown]
  - Adenoidal disorder [Unknown]

NARRATIVE: CASE EVENT DATE: 20190829
